FAERS Safety Report 20591294 (Version 1)
Quarter: 2022Q1

REPORT INFORMATION
  Report Type: Spontaneous
  Country: US (occurrence: None)
  Receive Date: 20220314
  Receipt Date: 20220314
  Transmission Date: 20220423
  Serious: No
  Sender: FDA-Public Use
  Company Number: 2022A081935

PATIENT
  Sex: Male

DRUGS (2)
  1. FASENRA [Suspect]
     Active Substance: BENRALIZUMAB
     Dosage: UNKNOWN
     Route: 058
  2. DUPIXENT [Concomitant]
     Active Substance: DUPILUMAB
     Dosage: UNKNOWN
     Route: 065

REACTIONS (2)
  - Arthralgia [Unknown]
  - Dyspnoea [Unknown]
